FAERS Safety Report 17733648 (Version 1)
Quarter: 2020Q2

REPORT INFORMATION
  Report Type: Report from Study
  Country: RU (occurrence: RU)
  Receive Date: 20200501
  Receipt Date: 20200501
  Transmission Date: 20200714
  Serious: Yes (Other)
  Sender: FDA-Public Use
  Company Number: RU-ROCHE-2587641

PATIENT
  Sex: Female

DRUGS (13)
  1. DACARBAZINE. [Suspect]
     Active Substance: DACARBAZINE
     Indication: LYMPHOPROLIFERATIVE DISORDER
     Route: 065
  2. PREDNISONE. [Suspect]
     Active Substance: PREDNISONE
     Indication: LYMPHOPROLIFERATIVE DISORDER
     Route: 065
  3. ETOPOSIDE. [Suspect]
     Active Substance: ETOPOSIDE
     Indication: LYMPHOPROLIFERATIVE DISORDER
     Route: 065
  4. DOXORUBICIN [Suspect]
     Active Substance: DOXORUBICIN
     Indication: LYMPHOPROLIFERATIVE DISORDER
     Route: 065
  5. BLEOMYCIN [Suspect]
     Active Substance: BLEOMYCIN SULFATE
     Indication: LYMPHOPROLIFERATIVE DISORDER
     Route: 065
  6. ADRIAMYCIN [Suspect]
     Active Substance: DOXORUBICIN HYDROCHLORIDE
     Indication: LYMPHOPROLIFERATIVE DISORDER
     Route: 065
  7. RITUXIMAB. [Suspect]
     Active Substance: RITUXIMAB
     Indication: LYMPHOPROLIFERATIVE DISORDER
     Route: 065
  8. PROCARBAZINE [Suspect]
     Active Substance: PROCARBAZINE
     Indication: LYMPHOPROLIFERATIVE DISORDER
     Route: 065
  9. PREDNISOLONE. [Suspect]
     Active Substance: PREDNISOLONE
     Indication: LYMPHOPROLIFERATIVE DISORDER
     Route: 065
  10. VINCRISTINE [Suspect]
     Active Substance: VINCRISTINE
     Indication: LYMPHOPROLIFERATIVE DISORDER
     Route: 065
  11. PREDNISOLONE. [Suspect]
     Active Substance: PREDNISOLONE
     Indication: LYMPHOPROLIFERATIVE DISORDER
     Route: 065
  12. CYCLOPHOSPHAMIDE. [Suspect]
     Active Substance: CYCLOPHOSPHAMIDE
     Indication: LYMPHOPROLIFERATIVE DISORDER
     Route: 065
  13. VINBLASTINE [Suspect]
     Active Substance: VINBLASTINE
     Indication: LYMPHOPROLIFERATIVE DISORDER
     Route: 065

REACTIONS (8)
  - Sepsis [Unknown]
  - Maternal exposure during pregnancy [Unknown]
  - Pneumocystis jirovecii pneumonia [Unknown]
  - Thrombosis [Unknown]
  - Tumour thrombosis [Unknown]
  - Premature delivery [Unknown]
  - Acute respiratory failure [Unknown]
  - Mucosal inflammation [Unknown]
